FAERS Safety Report 15869853 (Version 1)
Quarter: 2019Q1

REPORT INFORMATION
  Report Type: Spontaneous
  Country: DE (occurrence: DE)
  Receive Date: 20190125
  Receipt Date: 20190125
  Transmission Date: 20190417
  Serious: Yes (Life-Threatening, Hospitalization, Other)
  Sender: FDA-Public Use
  Company Number: PHHY2018DE164812

PATIENT
  Age: 22 Year
  Sex: Male
  Weight: 51 kg

DRUGS (3)
  1. COSENTYX [Suspect]
     Active Substance: SECUKINUMAB
     Dosage: 300 MG, UNK
     Route: 058
     Dates: start: 201808, end: 201810
  2. PREDNISOLONE. [Concomitant]
     Active Substance: PREDNISOLONE
     Indication: PRODUCT USED FOR UNKNOWN INDICATION
     Dosage: UNK
     Route: 065
  3. COSENTYX [Suspect]
     Active Substance: SECUKINUMAB
     Indication: PSORIASIS
     Dosage: UNK
     Route: 065
     Dates: start: 201807

REACTIONS (24)
  - Rheumatoid arthritis [Unknown]
  - Diarrhoea haemorrhagic [Unknown]
  - Systemic lupus erythematosus [Unknown]
  - Cholangitis sclerosing [Unknown]
  - Thrombocytosis [Unknown]
  - Haemorrhoids thrombosed [Unknown]
  - Vasculitis [Recovering/Resolving]
  - Arthritis [Recovering/Resolving]
  - Ascites [Unknown]
  - Hypochromic anaemia [Unknown]
  - Antinuclear antibody increased [Unknown]
  - Haemorrhoids [Unknown]
  - Autoimmune hepatitis [Unknown]
  - Iron deficiency anaemia [Unknown]
  - Colitis [Recovering/Resolving]
  - Sjogren^s syndrome [Unknown]
  - Chronic gastritis [Unknown]
  - Leukocytosis [Unknown]
  - Rhinitis [Unknown]
  - Colitis ulcerative [Unknown]
  - Polymyositis [Unknown]
  - Dermatomyositis [Unknown]
  - Gastric mucosa erythema [Unknown]
  - Malnutrition [Unknown]

NARRATIVE: CASE EVENT DATE: 201810
